FAERS Safety Report 11698517 (Version 1)
Quarter: 2015Q4

REPORT INFORMATION
  Report Type: Spontaneous
  Country: CN (occurrence: CN)
  Receive Date: 20151104
  Receipt Date: 20151104
  Transmission Date: 20160304
  Serious: Yes (Other)
  Sender: FDA-Public Use
  Company Number: CN-GILEAD-2015-0179287

PATIENT
  Age: 49 Year
  Sex: Male

DRUGS (6)
  1. HEPSERA [Suspect]
     Active Substance: ADEFOVIR DIPIVOXIL
     Indication: HEPATITIS B
     Dosage: 10 MG, QD
     Route: 065
     Dates: end: 201201
  2. CALCITRIOL. [Concomitant]
     Active Substance: CALCITRIOL
     Dosage: 25 UG, TID
  3. CALCITRIOL. [Concomitant]
     Active Substance: CALCITRIOL
     Dosage: 50 UG, TID
  4. CALTRATE D                         /00944201/ [Concomitant]
     Indication: OSTEOPOROSIS
     Dosage: 600 MG, QD
  5. CALCITRIOL. [Concomitant]
     Active Substance: CALCITRIOL
     Indication: OSTEOPOROSIS
     Dosage: 25 MG, QD
  6. ALENDRONATE SODIUM. [Concomitant]
     Active Substance: ALENDRONATE SODIUM
     Indication: OSTEOPOROSIS
     Dosage: 70 MG, WE

REACTIONS (7)
  - Chest pain [Recovered/Resolved]
  - Asthenia [Recovered/Resolved]
  - Hypophosphataemia [Recovered/Resolved]
  - Back pain [Recovered/Resolved]
  - Gait disturbance [Recovered/Resolved]
  - Osteoporosis [Recovered/Resolved]
  - Osteomalacia [Recovered/Resolved]

NARRATIVE: CASE EVENT DATE: 2008
